FAERS Safety Report 23716650 (Version 1)
Quarter: 2024Q2

REPORT INFORMATION
  Report Type: Report from Study
  Country: BR (occurrence: BR)
  Receive Date: 20240408
  Receipt Date: 20240408
  Transmission Date: 20240716
  Serious: Yes (Other)
  Sender: FDA-Public Use
  Company Number: BR-CELLTRION INC.-2023BR011340

PATIENT

DRUGS (12)
  1. INFLIXIMAB [Suspect]
     Active Substance: INFLIXIMAB
     Indication: Crohn^s disease
     Dosage: 4 AMPOULES EVERY MONTH
     Route: 042
     Dates: start: 20220914
  2. LEVOTHYROXINE SODIUM [Concomitant]
     Active Substance: LEVOTHYROXINE SODIUM
     Indication: Hormone replacement therapy
     Dosage: 1 CAPSULE DAY; START DATE: 7 YEARS AGO
     Route: 048
  3. OMEPRAZOLE [Concomitant]
     Active Substance: OMEPRAZOLE
     Indication: Reflux gastritis
     Dosage: 1 CAPSULE DAY; START DATE: 15 YEARS AGO
     Route: 048
  4. GLIFAGE [METFORMIN HYDROCHLORIDE] [Concomitant]
     Indication: Type 2 diabetes mellitus
     Dosage: 1 CAPSULE DAY; START DATE: 15 YEARS AGO
     Route: 048
  5. BISOPROLOL FUMARATE [Concomitant]
     Active Substance: BISOPROLOL FUMARATE
     Dosage: 1 CAPSULE DAY; START DATE: 10 YEARS AGO
     Route: 048
  6. VENZER [Concomitant]
     Indication: Hypertension
     Dosage: 1 CAPSULE DAY; START DATE: 5 YEARS AGO
     Route: 048
  7. PIOGLITAZONE HYDROCHLORIDE [Concomitant]
     Active Substance: PIOGLITAZONE HYDROCHLORIDE
     Indication: Type 2 diabetes mellitus
     Dosage: 1 CAPSULE DAY; START DATE: 5 YEARS AGO
     Route: 048
  8. ANGELIQ [Concomitant]
     Active Substance: DROSPIRENONE\ESTRADIOL
     Indication: Hormone level abnormal
     Dosage: 1 CAPSULE DAY; START DATE: 30 YEARS AGO
     Route: 048
  9. SYNTHROID [Concomitant]
     Active Substance: LEVOTHYROXINE SODIUM
     Indication: Hormone replacement therapy
     Dosage: 1 PILL A DAY
  10. ESOMEPRAZOLE [Concomitant]
     Active Substance: ESOMEPRAZOLE
     Indication: Gastrooesophageal reflux disease
     Dosage: 1 PILL A DAY
  11. TRULICITY [Concomitant]
     Active Substance: DULAGLUTIDE
     Dosage: ONCE A WEEK
  12. PLENANCE EZE [Concomitant]
     Indication: Hypercholesterolaemia
     Dosage: 20 + 10 MG, 1 CAPSULE DAY; START DATE: 5 YEARS AGO
     Route: 048

REACTIONS (19)
  - Crohn^s disease [Not Recovered/Not Resolved]
  - Embolism [Not Recovered/Not Resolved]
  - Pneumonitis [Not Recovered/Not Resolved]
  - Rhinorrhoea [Not Recovered/Not Resolved]
  - Rhinalgia [Not Recovered/Not Resolved]
  - Abdominal pain [Not Recovered/Not Resolved]
  - Bronchitis [Not Recovered/Not Resolved]
  - Dengue fever [Not Recovered/Not Resolved]
  - Diarrhoea [Not Recovered/Not Resolved]
  - Influenza [Recovered/Resolved]
  - Latent tuberculosis [Not Recovered/Not Resolved]
  - Malaise [Not Recovered/Not Resolved]
  - Muscle spasms [Not Recovered/Not Resolved]
  - Sinusitis [Not Recovered/Not Resolved]
  - Swelling face [Not Recovered/Not Resolved]
  - Product availability issue [Not Recovered/Not Resolved]
  - Intentional dose omission [Unknown]
  - Intentional product use issue [Unknown]
  - Therapy interrupted [Not Recovered/Not Resolved]

NARRATIVE: CASE EVENT DATE: 20230323
